FAERS Safety Report 25531532 (Version 2)
Quarter: 2025Q3

REPORT INFORMATION
  Report Type: Spontaneous
  Country: US (occurrence: US)
  Receive Date: 20250709
  Receipt Date: 20250928
  Transmission Date: 20251021
  Serious: No
  Sender: SANOFI AVENTIS
  Company Number: US-SA-2025SA190181

PATIENT
  Age: 9 Year
  Sex: Female
  Weight: 30 kg

DRUGS (1)
  1. CERDELGA [Suspect]
     Active Substance: ELIGLUSTAT
     Indication: Gaucher^s disease
     Dosage: 84 MG, QD
     Route: 048
     Dates: start: 202411

REACTIONS (1)
  - Weight increased [Unknown]

NARRATIVE: CASE EVENT DATE: 20250701
